FAERS Safety Report 8549009-7 (Version None)
Quarter: 2012Q3

REPORT INFORMATION
  Report Type: 
  Country: None (occurrence: None)
  Receive Date: 20120730
  Receipt Date: 20120717
  Transmission Date: 20120928
  Serious: Yes (Hospitalization)
  Sender: FDA-Public Use
  Company Number: GB-MPIJNJ-2012-04584

PATIENT

DRUGS (5)
  1. VELCADE [Suspect]
     Indication: MULTIPLE MYELOMA
     Dosage: UNK
     Route: 058
     Dates: start: 20120501, end: 20120531
  2. BONEFOS [Concomitant]
     Indication: MULTIPLE MYELOMA
     Dosage: 800 MG, QD
  3. ACETAMINOPHEN [Concomitant]
     Indication: PAIN
     Dosage: UNK
  4. DEXAMETHASONE [Concomitant]
     Indication: MULTIPLE MYELOMA
     Dosage: 20 MG, BID
  5. ACYCLOVIR [Concomitant]
     Indication: ANTIVIRAL PROPHYLAXIS
     Dosage: 200 MG, BID

REACTIONS (3)
  - RENAL IMPAIRMENT [None]
  - DRUG INEFFECTIVE [None]
  - DISEASE PROGRESSION [None]
